FAERS Safety Report 8871086 (Version 1)
Quarter: 2012Q4

REPORT INFORMATION
  Report Type: 
  Country: US (occurrence: US)
  Receive Date: 20121026
  Receipt Date: 20121026
  Transmission Date: 20130627
  Serious: No
  Sender: FDA-Public Use
  Company Number: US-AMGEN-USASP2012044085

PATIENT
  Age: 68 Year
  Sex: Female
  Weight: 79 kg

DRUGS (7)
  1. ENBREL [Suspect]
     Indication: PRODUCT USED FOR UNKNOWN INDICATION
     Dosage: 50 mg, qwk
     Route: 058
  2. METHOTREXATE [Concomitant]
     Dosage: 2.5 mg, UNK
  3. ATENOLOL [Concomitant]
     Dosage: 25 mg, UNK
  4. FOLIC ACID [Concomitant]
  5. CALCIUM [Concomitant]
     Dosage: 500 unk
  6. TRAVATAN [Concomitant]
     Dosage: 0.004 UNK, UNK
  7. VITAMIN D /00107901/ [Concomitant]
     Dosage: 400 UNK

REACTIONS (1)
  - Injection site reaction [Unknown]
